FAERS Safety Report 7835570-4 (Version None)
Quarter: 2011Q4

REPORT INFORMATION
  Report Type: 
  Country: None (occurrence: None)
  Receive Date: 20111024
  Receipt Date: 20111014
  Transmission Date: 20120403
  Serious: No
  Sender: FDA-Public Use
  Company Number: DK-ABBOTT-10P-044-0683529-00

PATIENT
  Sex: Female
  Weight: 180 kg

DRUGS (4)
  1. PROPAFENONE HCL [Suspect]
     Indication: DYSPNOEA
  2. OSTRADIOL [Concomitant]
     Dosage: 2 MG DAILY
  3. PROPAFENONE HCL [Suspect]
     Indication: ARRHYTHMIA
     Dosage: 300 MG DAILY,DOSE WAS REDUCED TO HALF
     Dates: start: 20100813, end: 20100825
  4. PROPAFENONE HCL [Suspect]
     Indication: EXTRASYSTOLES
     Route: 048
     Dates: start: 20100811, end: 20100813

REACTIONS (13)
  - PALLOR [None]
  - COLD SWEAT [None]
  - EYE IRRITATION [None]
  - TREMOR [None]
  - SLEEP DISORDER [None]
  - DYSPNOEA [None]
  - OPHTHALMOPLEGIA [None]
  - DIZZINESS [None]
  - HEADACHE [None]
  - EXTRASYSTOLES [None]
  - RAYNAUD'S PHENOMENON [None]
  - VOMITING [None]
  - NAUSEA [None]
